FAERS Safety Report 4394683-2 (Version None)
Quarter: 2004Q3

REPORT INFORMATION
  Report Type: 
  Country: None (occurrence: None)
  Receive Date: 20040706
  Receipt Date: 20040623
  Transmission Date: 20050211
  Serious: Yes (Other)
  Sender: FDA-Public Use
  Company Number: HQWYE647929APR04

PATIENT
  Sex: Male

DRUGS (18)
  1. CORDARONE [Suspect]
     Dosage: 100 MG 1X PER 1 DAY, ORAL
     Route: 048
     Dates: start: 20040101
  2. ACYCLOVIR [Concomitant]
  3. AMIKACIN [Concomitant]
  4. FLUCONAZOLE [Concomitant]
  5. CARVEDILOL [Concomitant]
  6. LANSOPRAZOLE [Concomitant]
  7. LISINOPRIL [Concomitant]
  8. SPIRONOLACTONE [Concomitant]
  9. ACETAMINOPHEN [Concomitant]
  10. BENTYL [Concomitant]
  11. LOPERAMIDE HCL [Concomitant]
  12. LORAZEPAM [Concomitant]
  13. COMPAZINE [Concomitant]
  14. MYLICON (SIMETHICONE) [Concomitant]
  15. ZOLPIDEM (ZOLPIDEM) [Concomitant]
  16. CEFEPIME (CEFEPIME) [Concomitant]
  17. CYTARABINE [Concomitant]
  18. ZOFRAN [Concomitant]

REACTIONS (7)
  - ATELECTASIS [None]
  - CARDIOMEGALY [None]
  - ESCHERICHIA SEPSIS [None]
  - LUNG INFILTRATION [None]
  - PLEURAL EFFUSION [None]
  - PNEUMONIA [None]
  - PSEUDOMONAL SEPSIS [None]
